FAERS Safety Report 6669701-9 (Version None)
Quarter: 2010Q2

REPORT INFORMATION
  Report Type: 
  Country: None (occurrence: None)
  Receive Date: 20100406
  Receipt Date: 20100323
  Transmission Date: 20101027
  Serious: Yes (Hospitalization)
  Sender: FDA-Public Use
  Company Number: IT-GENENTECH-299879

PATIENT
  Sex: Female
  Weight: 75 kg

DRUGS (12)
  1. RITUXIMAB [Suspect]
     Indication: CHRONIC LYMPHOCYTIC LEUKAEMIA
     Dosage: 375 MG/M2, 1/MONTH
     Route: 042
     Dates: start: 20100219
  2. CHLORAMBUCIL [Suspect]
     Indication: CHRONIC LYMPHOCYTIC LEUKAEMIA
     Dosage: 8 MG/M2, QD
     Route: 048
     Dates: start: 20091124, end: 20091128
  3. CHLORAMBUCIL [Suspect]
     Dosage: 8 MG/M2, QD
     Route: 048
     Dates: start: 20100121
  4. CHLORAMBUCIL [Suspect]
     Dosage: 8 MG/M2, QD
     Route: 048
     Dates: start: 20100220
  5. STEROID NOS [Suspect]
     Indication: THROMBOCYTOPENIA
     Dosage: UNK
     Route: 065
  6. PREDNISONE TAB [Concomitant]
     Indication: THROMBOCYTOPENIA
     Dosage: UNK
     Route: 065
     Dates: start: 20091217
  7. PARIET [Concomitant]
     Indication: DRUG USE FOR UNKNOWN INDICATION
     Dosage: UNK
     Dates: start: 20091124
  8. FOLIC ACID [Concomitant]
     Indication: DRUG USE FOR UNKNOWN INDICATION
     Dosage: UNK
     Dates: start: 20091104
  9. ALLOPURINOL [Concomitant]
     Indication: DRUG USE FOR UNKNOWN INDICATION
     Dosage: UNK
     Dates: start: 20091023
  10. ESOMEPRAZOLE [Concomitant]
     Indication: DRUG USE FOR UNKNOWN INDICATION
     Dosage: UNK
     Dates: start: 20091217
  11. VALACYCLOVIR [Concomitant]
     Indication: DRUG USE FOR UNKNOWN INDICATION
     Dosage: UNK
     Dates: start: 20100104
  12. TRIMETROPRIM/SULFAMETOXAZOL [Concomitant]
     Indication: DRUG USE FOR UNKNOWN INDICATION
     Dosage: 1560 MG, UNK
     Dates: start: 20091124

REACTIONS (1)
  - PLEURAL EFFUSION [None]
